FAERS Safety Report 15084933 (Version 5)
Quarter: 2018Q3

REPORT INFORMATION
  Report Type: Report from Study
  Country: CH (occurrence: CH)
  Receive Date: 20180628
  Receipt Date: 20180802
  Transmission Date: 20181010
  Serious: Yes (Life-Threatening, Hospitalization, Other)
  Sender: FDA-Public Use
  Company Number: PHHY2018CH026349

PATIENT
  Age: 63 Year
  Sex: Male

DRUGS (12)
  1. CLOPIN ECO [Suspect]
     Active Substance: CLOZAPINE
     Indication: SCHIZOPHRENIA
     Dosage: 200 MG, BID
     Route: 065
     Dates: start: 201710
  2. VALPROAT [Concomitant]
     Active Substance: VALPROATE SODIUM
     Indication: PRODUCT USED FOR UNKNOWN INDICATION
     Dosage: 1500 MG, QD
     Route: 065
  3. AMOXICILLIN + CLAVULANATE POTASSIUM [Suspect]
     Active Substance: AMOXICILLIN\CLAVULANATE POTASSIUM
     Indication: PRODUCT USED FOR UNKNOWN INDICATION
     Dosage: 2 G, QD
     Route: 065
  4. OLANZAPINE. [Suspect]
     Active Substance: OLANZAPINE
     Indication: PSYCHOTIC DISORDER
     Dosage: 15 MG, QD
     Route: 065
  5. LAPENAX [Suspect]
     Active Substance: CLOZAPINE
     Indication: SCHIZOPHRENIA
     Dosage: 300 MG, QD
     Route: 065
  6. PROPRANOLOL [Concomitant]
     Active Substance: PROPRANOLOL HYDROCHLORIDE
     Indication: PRODUCT USED FOR UNKNOWN INDICATION
     Dosage: 60 MG, QD
     Route: 065
  7. LAPENAX [Suspect]
     Active Substance: CLOZAPINE
     Indication: TREMOR
     Dosage: 100 MG, QD
     Route: 065
  8. CLOPIN ECO [Suspect]
     Active Substance: CLOZAPINE
     Indication: TREMOR
     Dosage: 300 MG, QD
     Route: 065
  9. CLOPIN ECO [Suspect]
     Active Substance: CLOZAPINE
     Dosage: 100 MG, QD
     Route: 065
  10. OLANZAPINE. [Suspect]
     Active Substance: OLANZAPINE
     Indication: SCHIZOPHRENIA
  11. TIOTROPIUM [Concomitant]
     Active Substance: TIOTROPIUM
     Indication: PRODUCT USED FOR UNKNOWN INDICATION
     Dosage: 18 PG, QD
     Route: 055
  12. BUDESONIDE. [Concomitant]
     Active Substance: BUDESONIDE
     Indication: PRODUCT USED FOR UNKNOWN INDICATION
     Dosage: UNK
     Route: 055

REACTIONS (20)
  - Fatigue [Recovering/Resolving]
  - Dyspnoea [Recovering/Resolving]
  - Infection [Unknown]
  - Labelled drug-drug interaction medication error [Recovered/Resolved]
  - Salivary hypersecretion [Recovering/Resolving]
  - Speech disorder [Unknown]
  - Confusional state [Recovered/Resolved]
  - C-reactive protein increased [Recovering/Resolving]
  - Tremor [Recovered/Resolved]
  - Toxicity to various agents [Recovering/Resolving]
  - Somnolence [Recovering/Resolving]
  - Disturbance in attention [Recovered/Resolved]
  - Overdose [Recovering/Resolving]
  - Delirium [Recovering/Resolving]
  - Condition aggravated [Unknown]
  - General physical condition abnormal [Unknown]
  - Incoherent [Recovered/Resolved]
  - Pneumonia aspiration [Recovering/Resolving]
  - Disorientation [Recovering/Resolving]
  - Sputum abnormal [Unknown]
